FAERS Safety Report 20402515 (Version 2)
Quarter: 2022Q1

REPORT INFORMATION
  Report Type: Spontaneous
  Country: US (occurrence: US)
  Receive Date: 20220131
  Receipt Date: 20220201
  Transmission Date: 20220423
  Serious: No
  Sender: FDA-Public Use
  Company Number: US-ABBVIE-21K-163-4089296-00

PATIENT
  Sex: Male

DRUGS (3)
  1. HUMIRA [Suspect]
     Active Substance: ADALIMUMAB
     Indication: Psoriatic arthropathy
     Route: 058
  2. COSENTYX [Concomitant]
     Active Substance: SECUKINUMAB
     Indication: Product used for unknown indication
  3. STELLERA CHAMAEJASME [Concomitant]
     Indication: Product used for unknown indication

REACTIONS (4)
  - Osteoarthritis [Unknown]
  - Gait disturbance [Unknown]
  - Arthralgia [Unknown]
  - Chondropathy [Unknown]
